FAERS Safety Report 18437847 (Version 2)
Quarter: 2020Q4

REPORT INFORMATION
  Report Type: Spontaneous
  Country: JP (occurrence: JP)
  Receive Date: 20201028
  Receipt Date: 20201120
  Transmission Date: 20210114
  Serious: Yes (Death, Other)
  Sender: FDA-Public Use
  Company Number: JP-SEATTLE GENETICS-2020SGN04804

PATIENT
  Age: 68 Year
  Sex: Female

DRUGS (1)
  1. ADCETRIS [Suspect]
     Active Substance: BRENTUXIMAB VEDOTIN
     Indication: ADULT T-CELL LYMPHOMA/LEUKAEMIA
     Dosage: 1.8 MILLIGRAM/KILOGRAM
     Route: 042
     Dates: start: 20200514

REACTIONS (2)
  - Adult T-cell lymphoma/leukaemia [Fatal]
  - Disease progression [Fatal]

NARRATIVE: CASE EVENT DATE: 20200526
